FAERS Safety Report 9651840 (Version 3)
Quarter: 2014Q1

REPORT INFORMATION
  Report Type: Spontaneous
  Country: JP (occurrence: JP)
  Receive Date: 20131029
  Receipt Date: 20140108
  Transmission Date: 20141002
  Serious: Yes (Other)
  Sender: FDA-Public Use
  Company Number: JP-JNJFOC-20131016173

PATIENT
  Sex: 0

DRUGS (7)
  1. TRAMCET [Suspect]
     Indication: WITHDRAWAL SYNDROME
     Dosage: ONCE DAILY
     Route: 048
  2. TRAMCET [Suspect]
     Indication: WITHDRAWAL SYNDROME
     Dosage: ONCE DAILY
     Route: 048
     Dates: start: 201310
  3. TRAMCET [Suspect]
     Indication: PAIN
     Dosage: ONCE DAILY
     Route: 048
  4. TRAMCET [Suspect]
     Indication: PAIN
     Dosage: ONCE DAILY
     Route: 048
     Dates: start: 201310
  5. DIOVAN [Concomitant]
     Indication: HYPERTENSION
     Dosage: ONCE A DAY
     Route: 048
  6. SORELMON [Concomitant]
     Indication: PAIN
     Dosage: ONCE A DAY
     Route: 048
  7. REBAMIPIDE [Concomitant]
     Indication: GASTROINTESTINAL DISORDER
     Dosage: ONCE A DAY
     Route: 048

REACTIONS (3)
  - Hallucination [Recovered/Resolved]
  - Delusion [Recovered/Resolved]
  - Withdrawal syndrome [Unknown]
